FAERS Safety Report 6824079-2 (Version None)
Quarter: 2010Q3

REPORT INFORMATION
  Report Type: 
  Country: None (occurrence: None)
  Receive Date: 20100708
  Receipt Date: 20061004
  Transmission Date: 20110219
  Serious: No
  Sender: FDA-Public Use
  Company Number: US-PFIZER INC-2006123072

PATIENT
  Sex: Female

DRUGS (5)
  1. CHANTIX [Suspect]
     Indication: SMOKING CESSATION THERAPY
     Dates: start: 20060101
  2. MELLARIL [Concomitant]
  3. ATIVAN [Concomitant]
  4. EFFEXOR [Concomitant]
  5. PREMPRO [Concomitant]

REACTIONS (6)
  - ANXIETY [None]
  - CLUMSINESS [None]
  - COORDINATION ABNORMAL [None]
  - INSOMNIA [None]
  - IRRITABILITY [None]
  - NERVOUSNESS [None]
